FAERS Safety Report 15745553 (Version 6)
Quarter: 2019Q2

REPORT INFORMATION
  Report Type: Report from Study
  Country: US (occurrence: US)
  Receive Date: 20181220
  Receipt Date: 20190408
  Transmission Date: 20190711
  Serious: Yes (Other)
  Sender: FDA-Public Use
  Company Number: US-SA-2018SA177970

PATIENT
  Age: 69 Year
  Sex: Male

DRUGS (3)
  1. VANDETANIB. [Suspect]
     Active Substance: VANDETANIB
     Indication: THYROID CANCER
     Dosage: 200 MG, QD
     Route: 048
  2. PREDNISONE. [Concomitant]
     Active Substance: PREDNISONE
     Dosage: UNK
  3. FLOVENT [Concomitant]
     Active Substance: FLUTICASONE PROPIONATE
     Dosage: UNK

REACTIONS (12)
  - Venous stent insertion [Unknown]
  - Ill-defined disorder [Unknown]
  - Haematoma [Unknown]
  - Electrocardiogram QT prolonged [Unknown]
  - Swelling [Unknown]
  - Chest wall tumour [Unknown]
  - Pain [Unknown]
  - Dysphagia [Unknown]
  - Dysphonia [Unknown]
  - Arthralgia [Unknown]
  - Erythema [Unknown]
  - Venous occlusion [Unknown]

NARRATIVE: CASE EVENT DATE: 201901
